FAERS Safety Report 13040546 (Version 1)
Quarter: 2016Q4

REPORT INFORMATION
  Report Type: Spontaneous
  Country: US (occurrence: US)
  Receive Date: 20161219
  Receipt Date: 20161219
  Transmission Date: 20170207
  Serious: Yes (Hospitalization)
  Sender: FDA-Public Use
  Company Number: US-SA-2016SA065357

PATIENT
  Sex: Male

DRUGS (2)
  1. AUBAGIO [Concomitant]
     Active Substance: TERIFLUNOMIDE
  2. PLAVIX [Suspect]
     Active Substance: CLOPIDOGREL BISULFATE
     Route: 065

REACTIONS (2)
  - Headache [Unknown]
  - Epistaxis [Unknown]

NARRATIVE: CASE EVENT DATE: 201603
